FAERS Safety Report 10059136 (Version 1)
Quarter: 2014Q2

REPORT INFORMATION
  Report Type: Report from Study
  Country: NL (occurrence: NL)
  Receive Date: 20140404
  Receipt Date: 20140404
  Transmission Date: 20141212
  Serious: Yes (Death)
  Sender: FDA-Public Use
  Company Number: PHHY2014NL040662

PATIENT
  Sex: Female

DRUGS (3)
  1. ZOMETA [Suspect]
     Indication: BREAST CANCER METASTATIC
     Dosage: 4 MG / 100 ML, ONCE EVERY 8 WEEKS
     Route: 042
  2. ZOMETA [Suspect]
     Dosage: 4 MG / 100 ML, ONCE EVERY 8 WEEKS
     Route: 042
     Dates: start: 20131031
  3. ZOMETA [Suspect]
     Dosage: 4 MG / 100 ML, ONCE EVERY 8 WEEKS
     Route: 042
     Dates: start: 20131223

REACTIONS (1)
  - Death [Fatal]
